FAERS Safety Report 24390469 (Version 1)
Quarter: 2024Q4

REPORT INFORMATION
  Report Type: Report from Study
  Country: US (occurrence: US)
  Receive Date: 20241003
  Receipt Date: 20241003
  Transmission Date: 20250115
  Serious: Yes (Death)
  Sender: ULTRAGENYX PHARMACEUTICAL
  Company Number: US-ULTRAGENYX PHARMACEUTICAL INC.-US-UGX-24-00007

PATIENT
  Sex: Male

DRUGS (2)
  1. DOJOLVI [Suspect]
     Active Substance: TRIHEPTANOIN
     Indication: Pyruvate carboxylase deficiency
     Dosage: 4.95 MILLILITER, QID (FOUR TIMES DAILY)
     Route: 048
     Dates: start: 202310
  2. DOJOLVI [Suspect]
     Active Substance: TRIHEPTANOIN
     Dosage: 4.95 MILLILITER, QID (FOUR TIMES DAILY)
     Route: 048
     Dates: start: 20231106

REACTIONS (2)
  - Death [Fatal]
  - Off label use [Unknown]
